FAERS Safety Report 5501657-4 (Version None)
Quarter: 2007Q4

REPORT INFORMATION
  Report Type: 
  Country: None (occurrence: None)
  Receive Date: 20071022
  Receipt Date: 20070720
  Transmission Date: 20080405
  Serious: No
  Sender: FDA-Public Use
  Company Number: SPV1-2007-03651

PATIENT
  Age: 6 Year
  Sex: Male
  Weight: 27.2 kg

DRUGS (2)
  1. VYVANSE [Suspect]
     Indication: ABNORMAL BEHAVIOUR
     Dosage: 30 MG, 1X/DAY;QD, ORAL
     Route: 048
     Dates: start: 20070718, end: 20070718
  2. VYVANSE [Suspect]
     Indication: DYSGRAPHIA
     Dosage: 30 MG, 1X/DAY;QD, ORAL
     Route: 048
     Dates: start: 20070718, end: 20070718

REACTIONS (8)
  - ABDOMINAL PAIN UPPER [None]
  - CRYING [None]
  - DECREASED INTEREST [None]
  - FEELING ABNORMAL [None]
  - INSOMNIA [None]
  - OFF LABEL USE [None]
  - RETCHING [None]
  - VOMITING [None]
